FAERS Safety Report 7775585-8 (Version None)
Quarter: 2011Q3

REPORT INFORMATION
  Report Type: 
  Country: None (occurrence: None)
  Receive Date: 20110923
  Receipt Date: 20110915
  Transmission Date: 20111222
  Serious: Yes (Other)
  Sender: FDA-Public Use
  Company Number: US-US-EMD SERONO, INC.-7079091

PATIENT
  Sex: Female
  Weight: 48 kg

DRUGS (5)
  1. IBUPROFEN [Concomitant]
     Indication: PREMEDICATION
  2. LOVAZA [Concomitant]
     Route: 048
  3. VITAMIN D [Concomitant]
  4. REBIF [Suspect]
     Indication: MULTIPLE SCLEROSIS
     Route: 058
     Dates: start: 20100417
  5. MULTIVITAMIN 1 [Concomitant]
     Route: 048

REACTIONS (2)
  - CEREBRAL CYST [None]
  - WHITE BLOOD CELL COUNT DECREASED [None]
